FAERS Safety Report 4604315-3 (Version None)
Quarter: 2005Q1

REPORT INFORMATION
  Report Type: 
  Country: None (occurrence: None)
  Receive Date: 20050215
  Receipt Date: 20050110
  Transmission Date: 20050727
  Serious: Yes (Hospitalization)
  Sender: FDA-Public Use
  Company Number: 392279

PATIENT
  Age: 47 Year
  Sex: Male
  Weight: 74.8 kg

DRUGS (4)
  1. PEGASYS [Suspect]
     Indication: HEPATITIS C
     Dosage: 180 MCG 1 PER WEEK SUBCUTANEOUS
     Route: 058
     Dates: start: 20040715
  2. COPEGUS [Suspect]
     Indication: HEPATITIS C
     Dosage: 1200 MG ORAL
     Route: 048
     Dates: start: 20040715, end: 20050105
  3. MORPHINE SULFATE [Concomitant]
  4. OXYCODONE (OXYCODONE) [Concomitant]

REACTIONS (10)
  - ABSCESS LIMB [None]
  - ASTHENIA [None]
  - DEPRESSION [None]
  - HAEMOGLOBIN DECREASED [None]
  - MORBID THOUGHTS [None]
  - NEUTROPHIL COUNT DECREASED [None]
  - PARANOIA [None]
  - RED BLOOD CELL COUNT DECREASED [None]
  - WEIGHT DECREASED [None]
  - WHITE BLOOD CELL COUNT DECREASED [None]
